FAERS Safety Report 9637091 (Version 2)
Quarter: 2014Q1

REPORT INFORMATION
  Report Type: Spontaneous
  Country: US (occurrence: US)
  Receive Date: 20131022
  Receipt Date: 20140220
  Transmission Date: 20141002
  Serious: Yes (Other)
  Sender: FDA-Public Use
  Company Number: US-BRISTOL-MYERS SQUIBB COMPANY-19549583

PATIENT
  Age: 62 Year
  Sex: Male

DRUGS (2)
  1. BYETTA [Suspect]
     Indication: TYPE 2 DIABETES MELLITUS
     Dosage: 9AP2010-AP10.5-JUN-2012:5MCG/0.02 ML:SUBQ(2/1/D). STOP:10MCG/0.04ML
     Dates: start: 20100409
  2. JANUVIA [Suspect]
     Indication: TYPE 2 DIABETES MELLITUS
     Dates: start: 20120312

REACTIONS (1)
  - Pancreatic carcinoma [Unknown]
